FAERS Safety Report 6456281-6 (Version None)
Quarter: 2009Q4

REPORT INFORMATION
  Report Type: 
  Country: None (occurrence: None)
  Receive Date: 20091125
  Receipt Date: 20091116
  Transmission Date: 20100525
  Serious: Yes (Hospitalization, Other)
  Sender: FDA-Public Use
  Company Number: US-ELI_LILLY_AND_COMPANY-US200910000309

PATIENT
  Sex: Female

DRUGS (3)
  1. FORTEO [Suspect]
     Indication: OSTEOPOROSIS
     Dosage: 20 UG, DAILY (1/D)
     Dates: start: 20090826
  2. CALCIUM 600 + D [Concomitant]
     Dosage: 600 MG, UNK
  3. VITAMIN D [Concomitant]
     Dosage: 1.25 MG, 2/W

REACTIONS (3)
  - BONE LESION [None]
  - FALL [None]
  - FEMUR FRACTURE [None]
